FAERS Safety Report 20658736 (Version 1)
Quarter: 2022Q1

REPORT INFORMATION
  Report Type: Spontaneous
  Country: GR (occurrence: GR)
  Receive Date: 20220331
  Receipt Date: 20220331
  Transmission Date: 20220423
  Serious: Yes (Other)
  Sender: FDA-Public Use
  Company Number: GR-MYLANLABS-2022M1020886

PATIENT
  Sex: Female

DRUGS (10)
  1. ARIPIPRAZOLE [Suspect]
     Active Substance: ARIPIPRAZOLE
     Indication: Product used for unknown indication
     Dosage: 30 MILLIGRAM
     Route: 065
  2. ARIPIPRAZOLE [Suspect]
     Active Substance: ARIPIPRAZOLE
     Dosage: 30 MILLIGRAM, QD 0-1-0 (INCREASE)
     Route: 065
  3. SERTRALINE [Suspect]
     Active Substance: SERTRALINE HYDROCHLORIDE
     Indication: Product used for unknown indication
     Dosage: 50 MILLIGRAM, QD (1-0-0)
     Route: 065
  4. RISPERIDONE [Suspect]
     Active Substance: RISPERIDONE
     Indication: Product used for unknown indication
     Dosage: 4 MILLIGRAM, BID (1-0-1)
     Route: 065
  5. RISPERIDONE [Suspect]
     Active Substance: RISPERIDONE
     Dosage: UNK UNK, BID (1/2-0-1) REDUCTION
     Route: 065
  6. QUETIAPINE [Suspect]
     Active Substance: QUETIAPINE
     Indication: Product used for unknown indication
     Dosage: 100 MILLIGRAM, QD (0-0-1)
     Route: 065
  7. FOLIC ACID [Concomitant]
     Active Substance: FOLIC ACID
     Indication: Product used for unknown indication
     Dosage: 5 MILLIGRAM, QD (1-0-0)
     Route: 065
  8. LIPIDIL [Concomitant]
     Active Substance: FENOFIBRATE
     Indication: Product used for unknown indication
     Dosage: UNK, QD (145, 1-0-0)
     Route: 065
  9. NEBIVOLOL HYDROCHLORIDE [Concomitant]
     Active Substance: NEBIVOLOL HYDROCHLORIDE
     Indication: Product used for unknown indication
     Dosage: 5 MILLIGRAM, QD (1-0-0)
     Route: 065
  10. ARTICLOX [Concomitant]
     Indication: Product used for unknown indication
     Dosage: 1 MILLIGRAM, EVERY 15 DAYS
     Route: 065

REACTIONS (1)
  - Hyperprolactinaemia [Recovered/Resolved]

NARRATIVE: CASE EVENT DATE: 20210929
